FAERS Safety Report 24415510 (Version 1)
Quarter: 2024Q4

REPORT INFORMATION
  Report Type: Spontaneous
  Country: CN (occurrence: CN)
  Receive Date: 20241009
  Receipt Date: 20241009
  Transmission Date: 20250114
  Serious: Yes (Hospitalization)
  Sender: CHEPLAPHARM
  Company Number: CH-CHEPLA-2024012792

PATIENT
  Age: 78 Year
  Sex: Female
  Weight: 61 kg

DRUGS (4)
  1. OLANZAPINE [Suspect]
     Active Substance: OLANZAPINE
     Indication: Mental disorder
     Dosage: 15MG, QN?DAILY DOSE: 15 MILLIGRAM
     Dates: start: 20240906
  2. OLANZAPINE [Suspect]
     Active Substance: OLANZAPINE
     Indication: Mental disorder
     Dosage: 2.5MG, PO, QD?DAILY DOSE: 17.5 MILLIGRAM
     Route: 048
     Dates: start: 20240918
  3. OLANZAPINE [Suspect]
     Active Substance: OLANZAPINE
     Indication: Mental disorder
     Dosage: 15MG, PO, QN?DAILY DOSE: 17.5 MILLIGRAM
     Route: 048
     Dates: start: 20240918
  4. OLANZAPINE [Suspect]
     Active Substance: OLANZAPINE
     Indication: Mental disorder
     Dosage: 7.5MG/DAY?DAILY DOSE: 7.5 MILLIGRAM
     Route: 048
     Dates: start: 20240922, end: 20241003

REACTIONS (3)
  - Tongue movement disturbance [Recovering/Resolving]
  - Drooling [Recovering/Resolving]
  - Pollakiuria [Recovering/Resolving]

NARRATIVE: CASE EVENT DATE: 20240919
